FAERS Safety Report 9257766 (Version 1)
Quarter: 2013Q1

REPORT INFORMATION
  Report Type: Spontaneous
  Country: US (occurrence: None)
  Receive Date: 20121212
  Receipt Date: 20121212
  Transmission Date: 20140127
  Serious: No
  Sender: FDA-Public Use
  Company Number: 1209USA009261

PATIENT
  Age: 64 Year
  Sex: Male

DRUGS (3)
  1. VICTRELIS [Suspect]
     Indication: HEPATITIS C
     Dates: start: 20120506
  2. RIBAVIRIN [Suspect]
     Indication: HEPATITIS C
     Dates: start: 20120408
  3. PEGASYS [Suspect]
     Indication: HEPATITIS C
     Dates: start: 20120407

REACTIONS (4)
  - Memory impairment [None]
  - Urinary tract infection [None]
  - Cough [None]
  - Irritability [None]
